FAERS Safety Report 10643192 (Version 1)
Quarter: 2014Q4

REPORT INFORMATION
  Report Type: Spontaneous
  Country: US (occurrence: None)
  Receive Date: 20141121
  Receipt Date: 20141121
  Transmission Date: 20150529
  Serious: No
  Sender: FDA-Public Use
  Company Number: 163-10004-14080347

PATIENT
  Age: 55 Year
  Sex: Female
  Weight: 88.91 kg

DRUGS (13)
  1. METHOTREXATE [Concomitant]
     Active Substance: METHOTREXATE
  2. SEROQUEL [Concomitant]
     Active Substance: QUETIAPINE FUMARATE
  3. AMBIEN [Concomitant]
     Active Substance: ZOLPIDEM TARTRATE
  4. ZANAFLEX [Concomitant]
     Active Substance: TIZANIDINE HYDROCHLORIDE
  5. TRAZODONE HCL (TRAZODONE HYDROCHLORIDE) [Concomitant]
  6. COREG [Concomitant]
     Active Substance: CARVEDILOL
  7. PREDNISONE. [Concomitant]
     Active Substance: PREDNISONE
  8. HYDROCODONE/APAP (VICODIN) [Concomitant]
  9. OTEZLA [Suspect]
     Active Substance: APREMILAST
     Indication: PSORIATIC ARTHROPATHY
     Route: 048
     Dates: start: 20140728
  10. FOLIC ACID. [Concomitant]
     Active Substance: FOLIC ACID
  11. SYNTHROID [Concomitant]
     Active Substance: LEVOTHYROXINE SODIUM
  12. LOSARTAN/HCTZ (HYZAAR) [Concomitant]
  13. MIRAPEX (PRAMIPREXOLE DIHYDROCHLORIDE) [Concomitant]

REACTIONS (7)
  - Peripheral swelling [None]
  - Upper respiratory tract infection [None]
  - Erythema [None]
  - Dry eye [None]
  - Gastrooesophageal reflux disease [None]
  - Rash papular [None]
  - Lower respiratory tract infection [None]

NARRATIVE: CASE EVENT DATE: 20140825
